FAERS Safety Report 7954155-2 (Version None)
Quarter: 2011Q4

REPORT INFORMATION
  Report Type: 
  Country: None (occurrence: None)
  Receive Date: 20111202
  Receipt Date: 20111121
  Transmission Date: 20120403
  Serious: Yes (Other)
  Sender: FDA-Public Use
  Company Number: US-MYLANLABS-2011S1022030

PATIENT
  Age: 10 Year
  Sex: Female

DRUGS (8)
  1. GUANFACINE [Suspect]
     Dosage: 1/2 TABLET 3 TIMES DAILY
     Route: 048
     Dates: start: 20091215, end: 20100201
  2. GUANFACINE [Suspect]
     Indication: ABNORMAL BEHAVIOUR
     Route: 048
     Dates: start: 20091113, end: 20091214
  3. GUANFACINE [Suspect]
     Indication: AUTISM
     Route: 048
     Dates: start: 20091113, end: 20091214
  4. GUANFACINE [Suspect]
     Indication: AGGRESSION
     Route: 048
     Dates: start: 20091113, end: 20091214
  5. GUANFACINE [Suspect]
     Dosage: 1/2 TABLET 3 TIMES DAILY
     Route: 048
     Dates: start: 20091215, end: 20100201
  6. GUANFACINE [Suspect]
     Dosage: 1/2 TABLET 3 TIMES DAILY
     Route: 048
     Dates: start: 20091215, end: 20100201
  7. GUANFACINE [Suspect]
     Indication: AUTISM SPECTRUM DISORDER
     Route: 048
     Dates: start: 20091113, end: 20091214
  8. GUANFACINE [Suspect]
     Dosage: 1/2 TABLET 3 TIMES DAILY
     Route: 048
     Dates: start: 20091215, end: 20100201

REACTIONS (14)
  - CONFUSIONAL STATE [None]
  - DYSPEPSIA [None]
  - SYNCOPE [None]
  - CHEST DISCOMFORT [None]
  - COMPLEX PARTIAL SEIZURES [None]
  - COORDINATION ABNORMAL [None]
  - SWELLING FACE [None]
  - LIP SWELLING [None]
  - SWOLLEN TONGUE [None]
  - DYSPNOEA [None]
  - SEDATION [None]
  - FATIGUE [None]
  - DIZZINESS [None]
  - BLOOD PRESSURE DECREASED [None]
